FAERS Safety Report 4404660-0 (Version None)
Quarter: 2004Q3

REPORT INFORMATION
  Report Type: 
  Country: None (occurrence: None)
  Receive Date: 20040722
  Receipt Date: 20040630
  Transmission Date: 20050211
  Serious: Yes (Death, Hospitalization)
  Sender: FDA-Public Use
  Company Number: US-AMGEN-US082093

PATIENT
  Sex: Male
  Weight: 63.6 kg

DRUGS (9)
  1. EPOGEN [Suspect]
     Indication: MYELODYSPLASTIC SYNDROME
     Dates: start: 20040602, end: 20040623
  2. LISINOPRIL [Concomitant]
  3. PLAVIX [Concomitant]
  4. ECOTRIN [Concomitant]
  5. LIPITOR [Concomitant]
  6. HYDROCHLOROTHIAZIDE [Concomitant]
  7. GLYBURIDE [Concomitant]
  8. AVANDIA [Concomitant]
  9. GLUCOPHAGE [Concomitant]

REACTIONS (4)
  - DYSPNOEA [None]
  - GROIN PAIN [None]
  - HAEMOGLOBIN DECREASED [None]
  - PULMONARY EMBOLISM [None]
